FAERS Safety Report 6312779-2 (Version None)
Quarter: 2009Q3

REPORT INFORMATION
  Report Type: 
  Country: None (occurrence: None)
  Receive Date: 20090818
  Receipt Date: 20090814
  Transmission Date: 20100115
  Serious: Yes (Death)
  Sender: FDA-Public Use
  Company Number: UA-BAYER-200928405GPV

PATIENT
  Age: 29 Year
  Sex: Female

DRUGS (1)
  1. BETAFERON [Suspect]
     Indication: DRUG USE FOR UNKNOWN INDICATION
     Route: 058
     Dates: start: 20080101, end: 20090805

REACTIONS (4)
  - DEATH [None]
  - DECUBITUS ULCER [None]
  - LOSS OF CONSCIOUSNESS [None]
  - PYREXIA [None]
